FAERS Safety Report 5061630-X (Version None)
Quarter: 2006Q3

REPORT INFORMATION
  Report Type: 
  Country: None (occurrence: None)
  Receive Date: 20060721
  Receipt Date: 20060711
  Transmission Date: 20061208
  Serious: Yes (Hospitalization, Other)
  Sender: FDA-Public Use
  Company Number: 2006086374

PATIENT
  Age: 20 Year
  Sex: Male

DRUGS (2)
  1. DILANTIN [Suspect]
     Indication: DRUG USE FOR UNKNOWN INDICATION
     Dosage: 500 MG (1 D)
  2. KEPPRA [Suspect]
     Indication: DRUG USE FOR UNKNOWN INDICATION
     Dosage: 1500 MG (1 D)

REACTIONS (2)
  - DRUG LEVEL DECREASED [None]
  - GRAND MAL CONVULSION [None]
